FAERS Safety Report 8524042 (Version 4)
Quarter: 2012Q4

REPORT INFORMATION
  Report Type: 
  Country: US (occurrence: US)
  Receive Date: 20120420
  Receipt Date: 20121126
  Transmission Date: 20130627
  Serious: Yes (Other)
  Sender: FDA-Public Use
  Company Number: US-JNJFOC-20120406689

PATIENT
  Age: 70 Year
  Sex: Female
  Weight: 122.45 kg

DRUGS (19)
  1. IBUPROFEN [Suspect]
     Indication: OSTEOARTHRITIS
     Route: 065
  2. CELEBREX [Suspect]
     Indication: OSTEOARTHRITIS
     Dosage: daily as needed orally before 10-MAR
     Route: 048
  3. CELEBREX [Suspect]
     Indication: OSTEOARTHRITIS
     Route: 048
  4. CELEBREX [Suspect]
     Indication: OSTEOARTHRITIS
     Route: 048
     Dates: end: 20110209
  5. CELEBREX [Suspect]
     Indication: OSTEOARTHRITIS
     Route: 048
     Dates: end: 201101
  6. MELOXICAM [Suspect]
     Indication: OSTEOARTHRITIS
     Route: 065
     Dates: start: 201101, end: 201110
  7. NSAIDS [Suspect]
     Indication: PRODUCT USED FOR UNKNOWN INDICATION
     Route: 065
  8. ACETYLSALICYLIC ACID [Concomitant]
     Dosage: taken daily
  9. OMEGA 3 [Concomitant]
     Dosage: taken daily
  10. CALCIUM WITH VITAMIN D [Concomitant]
     Dosage: 1200mg/1000mg
  11. GLUCOSAMINE SULFATE [Concomitant]
     Indication: ARTHROPATHY
  12. MULTIVITAMINS WITH MINERALS [Concomitant]
     Indication: EYE DISORDER
     Dosage: taken daily
  13. MEGAVIT B COMPLEX [Concomitant]
     Dosage: taken daily
  14. HYDROCHLOROTHIAZIDE [Concomitant]
     Indication: HYPERTENSION
     Dosage: daily
  15. LOSARTAN [Concomitant]
     Indication: HYPERTENSION
     Dosage: 100 mg daily
  16. ATENOLOL [Concomitant]
     Indication: HYPERTENSION
     Dosage: daily
  17. SYNTHROID [Concomitant]
     Indication: HYPOTHYROIDISM
     Dosage: taken daily
  18. PARACETAMOL [Concomitant]
     Route: 065
     Dates: start: 201109
  19. LEVOXYL [Concomitant]
     Route: 065

REACTIONS (12)
  - Renal impairment [Recovered/Resolved]
  - Hysterectomy [Unknown]
  - Cataract operation [Unknown]
  - Neuropathy peripheral [Unknown]
  - Pain [Not Recovered/Not Resolved]
  - Limb discomfort [Not Recovered/Not Resolved]
  - Myalgia [Not Recovered/Not Resolved]
  - Pain in extremity [Not Recovered/Not Resolved]
  - Pain [Recovering/Resolving]
  - Musculoskeletal discomfort [Recovering/Resolving]
  - Bursitis [Unknown]
  - Blood cholesterol increased [Unknown]
